FAERS Safety Report 5810961-1 (Version None)
Quarter: 2008Q3

REPORT INFORMATION
  Report Type: 
  Country: None (occurrence: None)
  Receive Date: 20080716
  Receipt Date: 20080708
  Transmission Date: 20090109
  Serious: Yes (Hospitalization, Other)
  Sender: FDA-Public Use
  Company Number: PHHY2008BR13568

PATIENT
  Age: 11 Year
  Sex: Male
  Weight: 48 kg

DRUGS (1)
  1. TEGRETOL [Suspect]
     Dosage: 200 MG, UNK

REACTIONS (5)
  - DIZZINESS [None]
  - DYSPNOEA [None]
  - GASTRIC LAVAGE [None]
  - INTENTIONAL OVERDOSE [None]
  - SOMNOLENCE [None]
